FAERS Safety Report 7482077-2 (Version None)
Quarter: 2011Q2

REPORT INFORMATION
  Report Type: 
  Country: None (occurrence: None)
  Receive Date: 20110516
  Receipt Date: 20110509
  Transmission Date: 20111010
  Serious: Yes (Hospitalization)
  Sender: FDA-Public Use
  Company Number: PHHY2011ES38794

PATIENT
  Age: 73 Year
  Sex: Male

DRUGS (4)
  1. METFORMIN HCL [Suspect]
     Indication: TYPE 2 DIABETES MELLITUS
     Dosage: 850 MG, BID
     Route: 048
     Dates: start: 20110208, end: 20110210
  2. ANAGASTRA [Concomitant]
     Dosage: 20 MG, UNK
     Dates: start: 20090101
  3. SINTROM [Concomitant]
     Dates: start: 20060101
  4. IXIA [Concomitant]
     Dates: start: 20100101

REACTIONS (1)
  - EPISTAXIS [None]
